FAERS Safety Report 10192236 (Version 2)
Quarter: 2014Q2

REPORT INFORMATION
  Report Type: Spontaneous
  Country: US (occurrence: US)
  Receive Date: 20140523
  Receipt Date: 20140523
  Transmission Date: 20141212
  Serious: No
  Sender: FDA-Public Use
  Company Number: US-ASTRAZENECA-2013SE51452

PATIENT
  Age: 79 Year
  Sex: Female
  Weight: 50.8 kg

DRUGS (6)
  1. PULMICORT FLEXHALER [Suspect]
     Indication: ASTHMA
     Dosage: 1 PUFF 90MCG DAILY
     Route: 055
     Dates: start: 2003
  2. PULMICORT FLEXHALER [Suspect]
     Indication: ASTHMA
     Dosage: 90MCG ONE INHALATION BID
     Route: 055
  3. PULMICORT FLEXHALER [Suspect]
     Indication: ASTHMA
     Dosage: 90MCG TWO INHALATIONS BID
     Route: 055
  4. PREDNISONE [Concomitant]
  5. REMICADE [Concomitant]
  6. THEOPHYLLINE [Concomitant]

REACTIONS (7)
  - Rheumatoid arthritis [Unknown]
  - Arteritis [Unknown]
  - Asthma [Unknown]
  - Dyspnoea [Unknown]
  - Device misuse [Unknown]
  - Intentional product misuse [Unknown]
  - Intentional product misuse [Unknown]
